FAERS Safety Report 6595870-5 (Version None)
Quarter: 2010Q1

REPORT INFORMATION
  Report Type: 
  Country: None (occurrence: None)
  Receive Date: 20100219
  Receipt Date: 20100219
  Transmission Date: 20100710
  Serious: Yes (Other)
  Sender: FDA-Public Use
  Company Number: None

PATIENT
  Sex: Female
  Weight: 78.0187 kg

DRUGS (1)
  1. AUGMENTIN [Suspect]
     Indication: URINARY TRACT INFECTION
     Dosage: 875-125 MG TAB ONE TABLET EVERY 12 HRS MOUTH
     Route: 048
     Dates: start: 20100114, end: 20100115

REACTIONS (2)
  - NO THERAPEUTIC RESPONSE [None]
  - PAIN IN EXTREMITY [None]
